FAERS Safety Report 12206954 (Version 2)
Quarter: 2016Q2

REPORT INFORMATION
  Report Type: Spontaneous
  Country: FR (occurrence: FR)
  Receive Date: 20160324
  Receipt Date: 20160411
  Transmission Date: 20160815
  Serious: Yes (Other)
  Sender: FDA-Public Use
  Company Number: FR-EMD SERONO-8073682

PATIENT
  Age: 50 Year
  Sex: Female
  Weight: 65 kg

DRUGS (3)
  1. FEXOFENADINE [Concomitant]
     Active Substance: FEXOFENADINE\FEXOFENADINE HYDROCHLORIDE
     Indication: ASTHMA
     Dosage: 180 (UNSPECIFIED UNITS)
     Dates: start: 2002
  2. REBIF [Suspect]
     Active Substance: INTERFERON BETA-1A
     Dates: start: 20160316, end: 20160319
  3. REBIF [Suspect]
     Active Substance: INTERFERON BETA-1A
     Indication: MULTIPLE SCLEROSIS
     Dates: start: 20100428, end: 20160222

REACTIONS (2)
  - Glaucoma [Recovering/Resolving]
  - Viral uveitis [Recovering/Resolving]

NARRATIVE: CASE EVENT DATE: 20160219
